FAERS Safety Report 9342131 (Version 1)
Quarter: 2013Q2

REPORT INFORMATION
  Report Type: Spontaneous
  Country: US (occurrence: US)
  Receive Date: 20130611
  Receipt Date: 20130611
  Transmission Date: 20140414
  Serious: No
  Sender: FDA-Public Use
  Company Number: US-ASTRAZENECA-2011SE38800

PATIENT
  Age: 54 Year
  Sex: Female

DRUGS (1)
  1. NEXIUM [Suspect]
     Route: 048

REACTIONS (7)
  - Drug dependence [Unknown]
  - Chest pain [Unknown]
  - Liver disorder [Unknown]
  - Dyspepsia [Unknown]
  - Road traffic accident [Unknown]
  - Intentional drug misuse [Unknown]
  - Drug dose omission [Unknown]
